APPROVED DRUG PRODUCT: THEOPHYLLINE
Active Ingredient: THEOPHYLLINE
Strength: 100MG
Dosage Form/Route: CAPSULE, EXTENDED RELEASE;ORAL
Application: A089976 | Product #001
Applicant: HOSPIRA INC
Approved: Jan 4, 1995 | RLD: No | RS: No | Type: DISCN